FAERS Safety Report 25659629 (Version 1)
Quarter: 2025Q3

REPORT INFORMATION
  Report Type: Spontaneous
  Country: US (occurrence: US)
  Receive Date: 20250808
  Receipt Date: 20250808
  Transmission Date: 20251021
  Serious: Yes (Death)
  Sender: MYLAN
  Company Number: US-MYLANLABS-2025M1065541

PATIENT
  Age: 66 Year
  Sex: Female

DRUGS (5)
  1. ETOPOSIDE [Suspect]
     Active Substance: ETOPOSIDE
     Indication: Neuroendocrine carcinoma
  2. CARBOPLATIN [Suspect]
     Active Substance: CARBOPLATIN
     Indication: Neuroendocrine carcinoma
  3. Immunoglobulin [Concomitant]
     Indication: Myasthenic syndrome
     Dosage: 0.4 GRAM PER KILOGRAM, QW (0.4 G/KG WEEKLY)
  4. Immunoglobulin [Concomitant]
     Indication: Scleroderma
     Dosage: UNK, BIWEEKLY (EVERY 2 WEEK)
  5. Immunoglobulin [Concomitant]
     Indication: Condition aggravated
     Dosage: 0.4 GRAM PER KILOGRAM, QW (0.4 G/KG WEEKLY)

REACTIONS (2)
  - Disease progression [Fatal]
  - Drug ineffective [Fatal]
